FAERS Safety Report 9669730 (Version 1)
Quarter: 2013Q4

REPORT INFORMATION
  Report Type: Spontaneous
  Country: US (occurrence: None)
  Receive Date: 20131104
  Receipt Date: 20131104
  Transmission Date: 20140711
  Serious: Yes (Hospitalization, Other)
  Sender: FDA-Public Use
  Company Number: None

PATIENT
  Age: 34 Year
  Sex: Male
  Weight: 59.5 kg

DRUGS (12)
  1. KETOROLAC [Suspect]
     Indication: PROCEDURAL PAIN
     Dosage: 15 MG Q6H, PRN/AS NEEDED, INTRAVENOUS
     Route: 042
     Dates: start: 20131026, end: 20131031
  2. VANCOMYCIN [Suspect]
     Route: 042
     Dates: start: 20131026, end: 20131031
  3. PIPERACILLIN-TAZOBACTAM [Concomitant]
  4. VANCOMYCIN [Concomitant]
  5. D5W-1/2 NS [Concomitant]
  6. ACETAMINOPHEN [Concomitant]
  7. DOCUSATE SODIUM [Concomitant]
  8. ESOMEPRAZOLE [Concomitant]
  9. HEPARIN [Concomitant]
  10. SCOPOLAMINE [Concomitant]
  11. SENNA [Concomitant]
  12. FENTANYL [Concomitant]

REACTIONS (1)
  - Renal failure acute [None]
